FAERS Safety Report 15415759 (Version 2)
Quarter: 2018Q4

REPORT INFORMATION
  Report Type: Spontaneous
  Country: US (occurrence: US)
  Receive Date: 20180922
  Receipt Date: 20181017
  Transmission Date: 20190204
  Serious: No
  Sender: FDA-Public Use
  Company Number: US-JNJFOC-20180822770

PATIENT
  Age: 52 Year
  Sex: Female
  Weight: 149.69 kg

DRUGS (2)
  1. IMODIUM MULTI-SYMPTOM RELIEF [Suspect]
     Active Substance: DIMETHICONE\LOPERAMIDE HYDROCHLORIDE
     Indication: COLECTOMY TOTAL
     Dosage: NEVER TAKES MORE THAN 4 IN A DAY
     Route: 065
     Dates: start: 2012, end: 20180816
  2. IMODIUM MULTI-SYMPTOM RELIEF [Suspect]
     Active Substance: DIMETHICONE\LOPERAMIDE HYDROCHLORIDE
     Route: 065

REACTIONS (2)
  - Product physical issue [Unknown]
  - Product administration error [Unknown]
